FAERS Safety Report 6775061-5 (Version None)
Quarter: 2010Q2

REPORT INFORMATION
  Report Type: 
  Country: None (occurrence: None)
  Receive Date: 20100617
  Receipt Date: 20100607
  Transmission Date: 20101027
  Serious: Yes (Hospitalization)
  Sender: FDA-Public Use
  Company Number: B0637894B

PATIENT
  Sex: Female
  Weight: 54 kg

DRUGS (2)
  1. LAPATINIB [Suspect]
     Indication: BREAST CANCER
     Dosage: 1500MG PER DAY
     Route: 048
     Dates: start: 20100115
  2. DOCETAXEL [Suspect]
     Indication: BREAST CANCER
     Dosage: 75MGM2 EVERY 3 WEEKS
     Route: 042
     Dates: start: 20100114, end: 20100322

REACTIONS (5)
  - DYSPEPSIA [None]
  - NAUSEA [None]
  - OESOPHAGEAL CANDIDIASIS [None]
  - PYREXIA [None]
  - VOMITING [None]
